FAERS Safety Report 8312356-8 (Version None)
Quarter: 2012Q2

REPORT INFORMATION
  Report Type: 
  Country: None (occurrence: None)
  Receive Date: 20120425
  Receipt Date: 20120418
  Transmission Date: 20120825
  Serious: Yes (Other)
  Sender: FDA-Public Use
  Company Number: US-AMGEN-USASP2012024568

PATIENT
  Sex: Female

DRUGS (3)
  1. ENBREL [Suspect]
     Indication: PSORIATIC ARTHROPATHY
     Dosage: 50 MG, QWK
     Dates: start: 20080701
  2. JANUVIA [Concomitant]
     Dosage: UNK
  3. LEVEMIR [Concomitant]
     Dosage: UNK

REACTIONS (4)
  - DIABETES MELLITUS [None]
  - PSORIATIC ARTHROPATHY [None]
  - PSORIASIS [None]
  - HERNIA [None]
